FAERS Safety Report 13813466 (Version 1)
Quarter: 2017Q3

REPORT INFORMATION
  Report Type: Spontaneous
  Country: US (occurrence: US)
  Receive Date: 20170730
  Receipt Date: 20170730
  Transmission Date: 20171127
  Serious: No
  Sender: FDA-Public Use
  Company Number: US-TEVA-784232ACC

PATIENT
  Sex: Female

DRUGS (1)
  1. RALOXIFENE HYDROCHLORIDE. [Suspect]
     Active Substance: RALOXIFENE HYDROCHLORIDE
     Indication: BREAST CANCER IN SITU
     Dates: end: 2017

REACTIONS (12)
  - Feeling abnormal [Recovered/Resolved]
  - Intentional dose omission [Unknown]
  - Arthralgia [Recovered/Resolved]
  - Presyncope [Unknown]
  - Pain in extremity [Unknown]
  - Upper respiratory tract congestion [Unknown]
  - Gait disturbance [Unknown]
  - Asthenia [Recovered/Resolved]
  - Depressed mood [Recovered/Resolved]
  - Fatigue [Recovered/Resolved]
  - Blood glucose increased [Unknown]
  - Malaise [Unknown]
